FAERS Safety Report 12782894 (Version 3)
Quarter: 2016Q4

REPORT INFORMATION
  Report Type: Spontaneous
  Country: US (occurrence: US)
  Receive Date: 20160927
  Receipt Date: 20161122
  Transmission Date: 20170207
  Serious: No
  Sender: FDA-Public Use
  Company Number: US-PFIZER INC-2016403913

PATIENT
  Age: 47 Year
  Sex: Female
  Weight: 118 kg

DRUGS (1)
  1. CELONTIN [Suspect]
     Active Substance: METHSUXIMIDE
     Indication: EPILEPSY
     Dosage: 900 MG, DAILY (300 MG IN THE MORNING; 600 MG AT NIGHT)
     Route: 048

REACTIONS (3)
  - Fall [Unknown]
  - Product physical issue [Not Recovered/Not Resolved]
  - Poor quality drug administered [Unknown]

NARRATIVE: CASE EVENT DATE: 201607
